FAERS Safety Report 19880110 (Version 3)
Quarter: 2021Q4

REPORT INFORMATION
  Report Type: Report from Study
  Country: ES (occurrence: None)
  Receive Date: 20210924
  Receipt Date: 20211215
  Transmission Date: 20220303
  Serious: Yes (Death)
  Sender: FDA-Public Use
  Company Number: ES-ROCHE-2911789

PATIENT

DRUGS (16)
  1. TOCILIZUMAB [Suspect]
     Active Substance: TOCILIZUMAB
     Indication: COVID-19 pneumonia
     Dosage: 8 MG/KG IN PATIENTS WEIGHING  30 KG OR 12 MG/KG IN PATIENTS WEIGHING 30 KG AS A 60-MINUTE?IV INFUSIO
     Route: 042
     Dates: start: 20200401
  2. TOCILIZUMAB [Suspect]
     Active Substance: TOCILIZUMAB
     Indication: Cytokine storm
  3. MEROPENEM [Concomitant]
     Active Substance: MEROPENEM
     Indication: Urinary tract infection
     Dates: start: 20200423, end: 20200427
  4. AMPICILLIN [Concomitant]
     Active Substance: AMPICILLIN
     Indication: Urinary tract infection
     Dates: start: 20200423, end: 20200427
  5. PIPERACILLIN SODIUM\TAZOBACTAM SODIUM [Concomitant]
     Active Substance: PIPERACILLIN SODIUM\TAZOBACTAM SODIUM
     Indication: Antibiotic prophylaxis
     Dates: start: 20200427, end: 20200502
  6. NYSTATIN [Concomitant]
     Active Substance: NYSTATIN
     Indication: Oral fungal infection
     Dates: start: 20200422, end: 20200507
  7. METHYLPREDNISOLONE [Concomitant]
     Active Substance: METHYLPREDNISOLONE
     Indication: COVID-19
     Dates: start: 20200424, end: 20200505
  8. BUDESONIDE [Concomitant]
     Active Substance: BUDESONIDE
     Indication: COVID-19
     Dates: start: 20200424, end: 20200511
  9. INSULIN NOS [Concomitant]
     Active Substance: INSULIN NOS
     Indication: Type 2 diabetes mellitus
     Dates: start: 20200429, end: 20200506
  10. BISOPROLOL [Concomitant]
     Active Substance: BISOPROLOL
     Dates: start: 20200502, end: 20200510
  11. IMIPENEM [Concomitant]
     Active Substance: IMIPENEM
     Indication: Urinary tract infection
     Dates: start: 20200505, end: 20200511
  12. LINEZOLID [Concomitant]
     Active Substance: LINEZOLID
     Indication: Antibiotic prophylaxis
     Dates: start: 20200505, end: 20200511
  13. MORPHINE HYDROCHLORIDE [Concomitant]
     Active Substance: MORPHINE HYDROCHLORIDE
     Indication: COVID-19
     Dates: start: 20200506, end: 20200511
  14. MIDAZOLAM [Concomitant]
     Active Substance: MIDAZOLAM
     Indication: COVID-19
     Dates: start: 20200508, end: 20200511
  15. ENALAPRIL [Concomitant]
     Active Substance: ENALAPRIL
     Indication: Hypertension
     Dates: start: 20200506, end: 20200510
  16. FLUCONAZOLE [Concomitant]
     Active Substance: FLUCONAZOLE
     Indication: Oral fungal infection
     Dates: start: 20200507, end: 20200511

REACTIONS (1)
  - Respiratory failure [Fatal]

NARRATIVE: CASE EVENT DATE: 20200511
